FAERS Safety Report 4952957-8 (Version None)
Quarter: 2006Q1

REPORT INFORMATION
  Report Type: 
  Country: None (occurrence: None)
  Receive Date: 20060321
  Receipt Date: 20060313
  Transmission Date: 20060701
  Serious: Yes (Life-Threatening)
  Sender: FDA-Public Use
  Company Number: SP-2006-002873

PATIENT
  Age: 88 Year
  Sex: Female

DRUGS (5)
  1. OLPRESS [Suspect]
     Indication: HYPERTENSION
     Dosage: 20 MG QD PO
     Route: 048
     Dates: start: 20060108, end: 20060223
  2. ASPIRIN [Concomitant]
  3. PEPARAZOL [Concomitant]
  4. LASIX [Concomitant]
  5. CORDARONE [Concomitant]

REACTIONS (2)
  - DEHYDRATION [None]
  - DIARRHOEA [None]
